FAERS Safety Report 11727661 (Version 2)
Quarter: 2015Q4

REPORT INFORMATION
  Report Type: Spontaneous
  Country: US (occurrence: None)
  Receive Date: 20151112
  Receipt Date: 20151117
  Transmission Date: 20160304
  Serious: Yes (Other)
  Sender: FDA-Public Use
  Company Number: US-MDT-ADR-2015-02140

PATIENT
  Age: 30 Year
  Sex: Female

DRUGS (1)
  1. LIORESAL [Suspect]
     Active Substance: BACLOFEN
     Indication: MUSCLE SPASTICITY
     Dosage: 96 MCG/ML

REACTIONS (6)
  - Muscle spasticity [None]
  - Tremor [None]
  - Pruritus [None]
  - Hypertonia [None]
  - Device kink [None]
  - Device inversion [None]
